FAERS Safety Report 17146606 (Version 1)
Quarter: 2019Q4

REPORT INFORMATION
  Report Type: Spontaneous
  Country: US (occurrence: US)
  Receive Date: 20191212
  Receipt Date: 20191212
  Transmission Date: 20200122
  Serious: No
  Sender: FDA-Public Use
  Company Number: US-BRISTOL-MYERS SQUIBB COMPANY-BMS-2019-114796

PATIENT
  Sex: Female
  Weight: 92.7 kg

DRUGS (1)
  1. WARFARIN SODIUM. [Suspect]
     Active Substance: WARFARIN SODIUM
     Indication: HYPERCOAGULATION
     Dosage: 1 TABLET, EVERY DAY
     Route: 048

REACTIONS (1)
  - Cardiolipin antibody positive [Unknown]
